FAERS Safety Report 15946549 (Version 3)
Quarter: 2019Q2

REPORT INFORMATION
  Report Type: Spontaneous
  Country: US (occurrence: US)
  Receive Date: 20190211
  Receipt Date: 20190419
  Transmission Date: 20190711
  Serious: Yes (Other)
  Sender: FDA-Public Use
  Company Number: US-ASTRAZENECA-2018SF26621

PATIENT
  Age: 770 Month
  Sex: Female

DRUGS (9)
  1. RANEXA [Concomitant]
     Active Substance: RANOLAZINE
  2. PRILOSEC OTC [Suspect]
     Active Substance: OMEPRAZOLE MAGNESIUM
     Indication: GASTROOESOPHAGEAL REFLUX DISEASE
     Route: 048
     Dates: start: 2003, end: 2011
  3. FUROSEMIDE. [Concomitant]
     Active Substance: FUROSEMIDE
  4. ISOSORBIDE DINITRATE. [Concomitant]
     Active Substance: ISOSORBIDE DINITRATE
  5. HYDRALAZINE [Concomitant]
     Active Substance: HYDRALAZINE HYDROCHLORIDE
  6. CALCITRIOL. [Concomitant]
     Active Substance: CALCITRIOL
  7. LABETALOL [Concomitant]
     Active Substance: LABETALOL\LABETALOL HYDROCHLORIDE
  8. NEXIUM [Suspect]
     Active Substance: ESOMEPRAZOLE MAGNESIUM
     Indication: GASTROOESOPHAGEAL REFLUX DISEASE
     Route: 048
     Dates: start: 200103, end: 201106
  9. METOLAZONE. [Concomitant]
     Active Substance: METOLAZONE

REACTIONS (3)
  - End stage renal disease [Unknown]
  - Chronic kidney disease [Not Recovered/Not Resolved]
  - Hyperparathyroidism secondary [Unknown]

NARRATIVE: CASE EVENT DATE: 201005
